FAERS Safety Report 12276008 (Version 1)
Quarter: 2016Q2

REPORT INFORMATION
  Report Type: Spontaneous
  Country: US (occurrence: US)
  Receive Date: 20160418
  Receipt Date: 20160418
  Transmission Date: 20160815
  Serious: Yes (Hospitalization, Other)
  Sender: FDA-Public Use
  Company Number: US-ALEXION-A201602510

PATIENT
  Sex: Female

DRUGS (1)
  1. STRENSIQ [Suspect]
     Active Substance: ASFOTASE ALFA
     Indication: HYPOPHOSPHATASIA
     Dosage: UNK
     Route: 058

REACTIONS (8)
  - Tremor [Unknown]
  - Nausea [Unknown]
  - Chills [Unknown]
  - Injection site erythema [Unknown]
  - Injection site pain [Unknown]
  - Headache [Unknown]
  - Blood alkaline phosphatase abnormal [Unknown]
  - Injection site rash [Unknown]

NARRATIVE: CASE EVENT DATE: 20160406
